FAERS Safety Report 18156676 (Version 1)
Quarter: 2020Q3

REPORT INFORMATION
  Report Type: Spontaneous
  Country: US (occurrence: US)
  Receive Date: 20200817
  Receipt Date: 20200817
  Transmission Date: 20201103
  Serious: Yes (Death)
  Sender: FDA-Public Use
  Company Number: None

PATIENT
  Age: 75 Year
  Sex: Male
  Weight: 93.6 kg

DRUGS (6)
  1. REMDESIVIR. [Suspect]
     Active Substance: REMDESIVIR
     Indication: COVID-19
     Route: 041
     Dates: start: 20200802, end: 20200806
  2. INSULIN [Concomitant]
     Active Substance: INSULIN NOS
     Dates: start: 20200801, end: 20200816
  3. BENZONATATE. [Concomitant]
     Active Substance: BENZONATATE
     Dates: start: 20200801, end: 20200806
  4. DEXAMETHASONE. [Concomitant]
     Active Substance: DEXAMETHASONE
     Dates: start: 20200801, end: 20200810
  5. REMDESIVIR. [Suspect]
     Active Substance: REMDESIVIR
     Indication: COVID-19
     Route: 041
     Dates: start: 20200802, end: 20200806
  6. HEPARIN [Concomitant]
     Active Substance: HEPARIN SODIUM
     Dates: start: 20200801, end: 20200816

REACTIONS (1)
  - Death [None]

NARRATIVE: CASE EVENT DATE: 20200816
